FAERS Safety Report 8800932 (Version 2)
Quarter: 2013Q2

REPORT INFORMATION
  Report Type: Spontaneous
  Country: US (occurrence: US)
  Receive Date: 20120921
  Receipt Date: 20130506
  Transmission Date: 20140414
  Serious: Yes (Life-Threatening, Other)
  Sender: FDA-Public Use
  Company Number: US-ASTELLAS-2012US007096

PATIENT
  Sex: Female

DRUGS (7)
  1. PROGRAF [Suspect]
     Indication: LIVER TRANSPLANT
     Dosage: 6 MG, UID/QD
     Route: 065
     Dates: start: 20060104
  2. PROGRAF [Suspect]
     Dosage: 1 MG, UNKNOWN/D
     Route: 065
  3. PROGRAF [Suspect]
     Dosage: 0.5 MG, UNKNOWN/D
     Route: 065
  4. PROGRAF [Suspect]
     Dosage: 2 MG OR 3 MG DAILY
     Route: 065
  5. THYROID THERAPY [Concomitant]
     Indication: PRODUCT USED FOR UNKNOWN INDICATION
     Dosage: UNK
     Route: 065
  6. UNSPECIFIED DIABETES MEDICATION [Concomitant]
     Indication: PRODUCT USED FOR UNKNOWN INDICATION
     Dosage: UNK
     Route: 065
  7. URSODIOL [Concomitant]
     Indication: PRODUCT USED FOR UNKNOWN INDICATION
     Dosage: UNK
     Route: 065

REACTIONS (15)
  - Lymphoma [Not Recovered/Not Resolved]
  - Diabetes mellitus [Not Recovered/Not Resolved]
  - Breast cancer [Unknown]
  - Surgery [Unknown]
  - Fracture [Unknown]
  - Bone pain [Not Recovered/Not Resolved]
  - Hepatic enzyme abnormal [Not Recovered/Not Resolved]
  - Headache [Not Recovered/Not Resolved]
  - Cystitis [Not Recovered/Not Resolved]
  - Tachycardia [Unknown]
  - Asthenia [Unknown]
  - Tremor [Unknown]
  - Infection [Unknown]
  - Depression [Unknown]
  - Hypertension [Unknown]
